FAERS Safety Report 6024376-7 (Version None)
Quarter: 2008Q4

REPORT INFORMATION
  Report Type: 
  Country: None (occurrence: None)
  Receive Date: 20081231
  Receipt Date: 20081223
  Transmission Date: 20090506
  Serious: Yes (Life-Threatening, Other)
  Sender: FDA-Public Use
  Company Number: GR-JNJFOC-20080601154

PATIENT
  Age: 13 Year
  Sex: Female
  Weight: 35.7 kg

DRUGS (8)
  1. REMICADE [Suspect]
     Indication: CROHN'S DISEASE
     Dosage: 2ND INFUSION
     Route: 042
  2. ANTIHISTAMINES [Concomitant]
  3. FOLIC ACID [Concomitant]
     Indication: CROHN'S DISEASE
     Route: 048
  4. AZATHIOPRINE [Concomitant]
     Indication: CROHN'S DISEASE
     Route: 048
  5. OMEPRAZOLE [Concomitant]
     Indication: CROHN'S DISEASE
  6. METHYLPREDNISOLONE 16MG TAB [Concomitant]
     Indication: CROHN'S DISEASE
  7. ATARAX [Concomitant]
     Indication: PREMEDICATION
  8. SOLU-MEDROL [Concomitant]
     Indication: PREMEDICATION

REACTIONS (7)
  - ANAPHYLACTIC REACTION [None]
  - CHEST PAIN [None]
  - CYANOSIS [None]
  - DYSPNOEA [None]
  - PROLONGED EXPIRATION [None]
  - RASH MACULAR [None]
  - TACHYCARDIA [None]
